FAERS Safety Report 21819236 (Version 1)
Quarter: 2023Q1

REPORT INFORMATION
  Report Type: Spontaneous
  Country: None (occurrence: US)
  Receive Date: 20230104
  Receipt Date: 20230104
  Transmission Date: 20230417
  Serious: Yes (Life-Threatening, Hospitalization)
  Sender: FDA-Public Use
  Company Number: US-Standard Homeopathic-2136418

PATIENT
  Age: 85 Year
  Sex: Female

DRUGS (4)
  1. HOMEOPATHICS [Suspect]
     Active Substance: HOMEOPATHICS
     Indication: Muscle spasms
     Route: 060
     Dates: start: 20221213, end: 20221213
  2. LOSARTAN [Concomitant]
     Active Substance: LOSARTAN
  3. FAMOTIDINE [Concomitant]
     Active Substance: FAMOTIDINE
  4. LETROZOLE [Concomitant]
     Active Substance: LETROZOLE

REACTIONS (1)
  - Atrioventricular block [Recovered/Resolved]
